FAERS Safety Report 11428650 (Version 1)
Quarter: 2015Q3

REPORT INFORMATION
  Report Type: Spontaneous
  Country: US (occurrence: None)
  Receive Date: 20150827
  Receipt Date: 20150827
  Transmission Date: 20151125
  Serious: No
  Sender: FDA-Public Use
  Company Number: None

PATIENT
  Sex: Female

DRUGS (2)
  1. RIBAVIRIN. [Suspect]
     Active Substance: RIBAVIRIN
     Dosage: 600MG  PO  EVERY MORNING AND EVENING
     Route: 048
     Dates: start: 20150622
  2. SOVALDI [Suspect]
     Active Substance: SOFOSBUVIR
     Route: 048
     Dates: start: 20150622

REACTIONS (4)
  - Dry mouth [None]
  - Fatigue [None]
  - Asthenia [None]
  - Myalgia [None]
